FAERS Safety Report 8008053-9 (Version None)
Quarter: 2011Q4

REPORT INFORMATION
  Report Type: 
  Country: None (occurrence: None)
  Receive Date: 20111227
  Receipt Date: 20111219
  Transmission Date: 20120403
  Serious: Yes (Hospitalization)
  Sender: FDA-Public Use
  Company Number: PHHY2011SK106920

PATIENT
  Age: 64 Year
  Sex: Female

DRUGS (15)
  1. ALISKIREN [Concomitant]
  2. SITAGLIPTIN [Concomitant]
     Dosage: 1 TABLET IN MORNING
     Route: 048
  3. ACETYLSALICYLIC ACID SRT [Concomitant]
     Dosage: 1 TABLET IN MORNING
     Route: 048
  4. ATORVASTATIN [Concomitant]
     Dosage: 20 MG TABLET IN MORNING
     Route: 048
  5. CLOPIDOGREL [Concomitant]
     Dosage: I TABLET IN MORNING
     Route: 048
  6. ATENOLOL [Concomitant]
     Dosage: 100 MG, QD
  7. METYLDOPA [Concomitant]
     Dosage: 1 DF, TID
     Route: 048
  8. METFORMIN [Concomitant]
     Dosage: 1 DF, BID
     Route: 048
  9. AMLODIPINE [Concomitant]
     Dosage: 5 MG, BID
  10. INDAPAMIDE [Concomitant]
     Dosage: 1.25 MG, QD
     Route: 048
  11. LACIDIPINE [Concomitant]
     Dosage: 4 MG, QD
     Route: 048
  12. URADIPIL [Concomitant]
  13. FLUVASTATIN SODIUM [Suspect]
     Dosage: 80 MG IN MORNING
     Route: 048
  14. PERINDOPRIL [Concomitant]
     Dosage: 5 MG, QD
     Route: 048
  15. GLICLAZIDE [Concomitant]
     Dosage: 3 TABLETS IN MORNING
     Route: 048

REACTIONS (10)
  - HYPERTENSION [None]
  - HYPERCHOLESTEROLAEMIA [None]
  - DRUG INEFFECTIVE [None]
  - CAROTID ARTERY STENOSIS [None]
  - DIABETES MELLITUS INADEQUATE CONTROL [None]
  - BLOOD GLUCOSE INCREASED [None]
  - PROTEINURIA [None]
  - CARDIOMEGALY [None]
  - BRAIN STEM ISCHAEMIA [None]
  - VENTRICULAR HYPERTROPHY [None]
